FAERS Safety Report 13556740 (Version 1)
Quarter: 2017Q2

REPORT INFORMATION
  Report Type: Spontaneous
  Country: GB (occurrence: GB)
  Receive Date: 20170516
  Receipt Date: 20170516
  Transmission Date: 20170830
  Serious: Yes (Other)
  Sender: FDA-Public Use
  Company Number: GB-MICRO LABS LIMITED-BB2017-00637

PATIENT
  Age: 69 Year
  Sex: Male
  Weight: 90.26 kg

DRUGS (2)
  1. PERINDOPRIL TERT-BUTYLAMINE [Concomitant]
     Active Substance: PERINDOPRIL ERBUMINE
     Indication: PRODUCT USED FOR UNKNOWN INDICATION
     Route: 065
  2. SIMVASTATIN 40 MG FILM COATED TABLETS [Suspect]
     Active Substance: SIMVASTATIN
     Indication: LOW DENSITY LIPOPROTEIN INCREASED
     Route: 048
     Dates: start: 1987

REACTIONS (4)
  - Myopathy [None]
  - Muscular weakness [Not Recovered/Not Resolved]
  - Liver disorder [Unknown]
  - Liver iron concentration abnormal [None]

NARRATIVE: CASE EVENT DATE: 2014
